FAERS Safety Report 8986575 (Version 1)
Quarter: 2012Q4

REPORT INFORMATION
  Report Type: 
  Country: SA (occurrence: SA)
  Receive Date: 20121226
  Receipt Date: 20121226
  Transmission Date: 20130627
  Serious: Yes (Death)
  Sender: FDA-Public Use
  Company Number: SA-ROCHE-1171942

PATIENT
  Age: 62 Year
  Sex: Male

DRUGS (2)
  1. XELODA [Suspect]
     Indication: COLORECTAL CANCER
     Route: 048
     Dates: start: 20121203
  2. OXALIPLATIN [Concomitant]
     Indication: COLORECTAL CANCER
     Route: 065

REACTIONS (3)
  - Diarrhoea [Fatal]
  - Mucosal inflammation [Fatal]
  - Neutropenia [Fatal]
